FAERS Safety Report 21982192 (Version 4)
Quarter: 2023Q1

REPORT INFORMATION
  Report Type: Spontaneous
  Country: CA (occurrence: CA)
  Receive Date: 20230213
  Receipt Date: 20230324
  Transmission Date: 20230418
  Serious: Yes (Hospitalization, Other)
  Sender: FDA-Public Use
  Company Number: CA-CELLTRION INC.-2023CA002951

PATIENT

DRUGS (19)
  1. INFLECTRA [Suspect]
     Active Substance: INFLIXIMAB-DYYB
     Indication: Crohn^s disease
     Dosage: 5 MG/KG, W0, W2, W6 AND EVERY 8 WEEKS
     Route: 042
     Dates: start: 20230120
  2. INFLECTRA [Suspect]
     Active Substance: INFLIXIMAB-DYYB
     Dosage: 5 MG/KG, W0, W2, W6 AND EVERY 8 WEEKS
     Route: 042
     Dates: start: 20230120, end: 20230202
  3. INFLECTRA [Suspect]
     Active Substance: INFLIXIMAB-DYYB
     Dosage: 370 MG, INDUCTION W2 (5 MG/KG, W0, W2, W6 AND EVERY 8 WEEKS)
     Route: 042
     Dates: start: 20230202
  4. CALCIUM [Concomitant]
     Active Substance: CALCIUM
     Dosage: 500 MG
     Route: 048
  5. EZETIMIBE [Concomitant]
     Active Substance: EZETIMIBE
     Dosage: 10 MG
     Route: 048
  6. DAPAGLIFLOZIN [Concomitant]
     Active Substance: DAPAGLIFLOZIN
     Dosage: 10 MG
     Route: 048
  7. INSULINE LENTE [Concomitant]
     Dosage: UNK
  8. INSULINE LENTE [Concomitant]
     Dosage: 1 DF (INSULIN SLOW)
     Route: 058
  9. INSULINE RAPIDE HP [Concomitant]
     Dosage: UNK
  10. INSULINE RAPIDE HP [Concomitant]
     Dosage: 1 DF (INSULIN FAST)
     Route: 058
  11. PREDNISONE [Concomitant]
     Active Substance: PREDNISONE
     Dosage: 1 DF, 7.5MG AM, 5MG PM
     Route: 048
     Dates: start: 2008
  12. PREDNISONE [Concomitant]
     Active Substance: PREDNISONE
     Dosage: 7.5 MG, 1 DF
     Route: 048
  13. PULMICORT TURBUHALER [Concomitant]
     Active Substance: BUDESONIDE
     Dosage: 5 MG
  14. PULMICORT TURBUHALER [Concomitant]
     Active Substance: BUDESONIDE
     Dosage: 5 MG
     Route: 055
  15. RHINOCORT [Concomitant]
     Active Substance: BUDESONIDE
     Dosage: 64 MG
     Route: 045
  16. RISEDRONATE SODIUM [Concomitant]
     Active Substance: RISEDRONATE SODIUM
     Dosage: 35 MG, WEEKLY
     Route: 048
  17. MESALAMINE [Concomitant]
     Active Substance: MESALAMINE
     Dosage: 1000 MG, AS NEEDED
     Route: 054
  18. CHOLECALCIFEROL [Concomitant]
     Active Substance: CHOLECALCIFEROL
     Dosage: 10000 IU
  19. CHOLECALCIFEROL [Concomitant]
     Active Substance: CHOLECALCIFEROL
     Dosage: 1000 IU
     Route: 048

REACTIONS (9)
  - Tongue disorder [Not Recovered/Not Resolved]
  - Rash [Not Recovered/Not Resolved]
  - Pruritus [Not Recovered/Not Resolved]
  - Cough [Not Recovered/Not Resolved]
  - Wheezing [Recovered/Resolved]
  - Anaphylactic shock [Not Recovered/Not Resolved]
  - Blood pressure fluctuation [Not Recovered/Not Resolved]
  - Blood glucose increased [Not Recovered/Not Resolved]
  - Nasopharyngitis [Not Recovered/Not Resolved]

NARRATIVE: CASE EVENT DATE: 20230202
